FAERS Safety Report 8403457-4 (Version None)
Quarter: 2012Q2

REPORT INFORMATION
  Report Type: 
  Country: None (occurrence: None)
  Receive Date: 20120601
  Receipt Date: 20091112
  Transmission Date: 20120825
  Serious: Yes (Other)
  Sender: FDA-Public Use
  Company Number: JP-BRISTOL-MYERS SQUIBB COMPANY-14872154

PATIENT
  Age: 60 Year
  Sex: Female

DRUGS (3)
  1. ABILIFY [Suspect]
     Dosage: ORAL SOLUTION 0.1% 24 MG: SEP09-UNK 6 MG: UNK-NOV09
     Route: 048
     Dates: end: 20091101
  2. ROHYPNOL [Concomitant]
  3. DESYREL [Concomitant]

REACTIONS (3)
  - FALL [None]
  - FRACTURE [None]
  - PARKINSONIAN GAIT [None]
